FAERS Safety Report 15565810 (Version 2)
Quarter: 2018Q4

REPORT INFORMATION
  Report Type: Report from Study
  Country: US (occurrence: US)
  Receive Date: 20181030
  Receipt Date: 20181114
  Transmission Date: 20190205
  Serious: Yes (Other)
  Sender: FDA-Public Use
  Company Number: US-PFIZER INC-2018417031

PATIENT
  Age: 66 Year
  Sex: Female

DRUGS (2)
  1. IBRANCE [Suspect]
     Active Substance: PALBOCICLIB
     Indication: BREAST CANCER
     Dosage: 125 MG, CYCLIC (21 DAYS ON, 7 DAYS OFF)
     Route: 048
     Dates: start: 20180923
  2. IBRANCE [Suspect]
     Active Substance: PALBOCICLIB
     Dosage: 125 MG, CYCLIC (125MG 21 DAYS ON, 7 DAYS OFF,)
     Route: 048
     Dates: start: 20181023, end: 20181025

REACTIONS (18)
  - Thrombocytopenia [Recovered/Resolved]
  - Rash [Not Recovered/Not Resolved]
  - Condition aggravated [Not Recovered/Not Resolved]
  - Asthenia [Unknown]
  - Dry mouth [Unknown]
  - Fatigue [Unknown]
  - Dizziness [Unknown]
  - Epistaxis [Not Recovered/Not Resolved]
  - Leukopenia [Recovered/Resolved]
  - Decreased appetite [Unknown]
  - Vaginal haemorrhage [Not Recovered/Not Resolved]
  - Musculoskeletal chest pain [Unknown]
  - Abdominal pain upper [Unknown]
  - Palpitations [Unknown]
  - Scab [Not Recovered/Not Resolved]
  - Rectal haemorrhage [Not Recovered/Not Resolved]
  - Back pain [Unknown]
  - Condition aggravated [Unknown]

NARRATIVE: CASE EVENT DATE: 2018
